FAERS Safety Report 7727623-6 (Version None)
Quarter: 2011Q3

REPORT INFORMATION
  Report Type: 
  Country: None (occurrence: None)
  Receive Date: 20110902
  Receipt Date: 20110826
  Transmission Date: 20111222
  Serious: Yes (Life-Threatening, Hospitalization, Other)
  Sender: FDA-Public Use
  Company Number: PHHY2011DE58388

PATIENT
  Sex: Male
  Weight: 95 kg

DRUGS (25)
  1. METOPROLOL [Concomitant]
     Indication: HEART RATE
     Dosage: 190 MG, QD
     Route: 048
     Dates: start: 20090501
  2. RASILEZ [Suspect]
     Dosage: UNK UKN, UNK
     Route: 048
     Dates: start: 20100510
  3. ANTIADRENERGIC AGENTS, CENTRALLY ACTING [Concomitant]
     Dosage: UNK
     Dates: start: 20100704
  4. VASODILATORS USED IN CARDIAC DISEASES [Concomitant]
     Dosage: UNK
     Dates: start: 20091020, end: 20100510
  5. EBRANTIL [Concomitant]
     Indication: HYPERTENSION
     Dosage: 120 MG, QD
     Route: 048
     Dates: start: 20091001, end: 20100707
  6. RAMIPRIL [Concomitant]
     Dosage: 1 DF, QD
  7. METOPROLOL SUCCINATE [Concomitant]
     Indication: HEART RATE
     Dosage: 1 DF, BID
     Route: 048
     Dates: start: 20090501
  8. HAEMITON [Concomitant]
     Dosage: 1 DF, QD
  9. RASILEZ HCT [Suspect]
     Indication: HYPERTENSION
     Dosage: 1 DF, QD
     Route: 048
     Dates: start: 20091001, end: 20100501
  10. RASILEZ HCT [Suspect]
     Indication: RENIN INCREASED
  11. ACE INHIBITOR NOS [Concomitant]
     Dosage: UNK UKN, UNK
  12. ANTIADRENERGIC AGENTS, CENTRALLY ACTING [Concomitant]
     Dosage: UNK UKN, UNK
     Dates: end: 20091020
  13. LANTUS [Concomitant]
     Indication: DIABETES MELLITUS
     Dosage: 24 IU, QD
     Route: 058
     Dates: start: 20091001
  14. DIOVAN [Suspect]
     Indication: HYPERTENSION
     Dosage: 1 DF, QD, 320 MG
     Route: 048
     Dates: start: 20060101, end: 20090301
  15. HYDROCHLOROTHIAZIDE [Suspect]
     Dosage: 1 DF, QD
     Route: 048
  16. RASILEZ [Suspect]
     Indication: HYPERTENSION
     Dosage: UNK UKN, UNK
     Route: 048
     Dates: start: 20090319, end: 20091001
  17. DIOVAN [Suspect]
     Dosage: 320 MG, QD
     Route: 048
     Dates: start: 20090727, end: 20100510
  18. AMLODIPINE [Concomitant]
     Indication: HYPERTENSION
     Dosage: 10 MG, QD
     Route: 048
     Dates: start: 20091001
  19. GLIMEPIRIDE [Concomitant]
     Indication: DIABETES MELLITUS
     Dosage: 1.5 MG, QD
     Route: 048
     Dates: start: 20091001
  20. NSAID'S [Concomitant]
     Dosage: UNK
  21. FINASTERIDE [Concomitant]
     Indication: BENIGN PROSTATIC HYPERPLASIA
     Dosage: 5 MG, QD
     Route: 048
     Dates: start: 20091001
  22. PANTOPRAZOLE [Concomitant]
     Dosage: UNK
  23. THIENOPYRIDINES [Concomitant]
     Dosage: UKN
  24. STATINS [Concomitant]
     Dosage: UNK
  25. ACETYLIC SALYCYLIC ACID [Concomitant]
     Indication: MYOCARDIAL INFARCTION
     Dosage: 1 DF, QD
     Dates: end: 20110501

REACTIONS (15)
  - HYPERPROTEINAEMIA [None]
  - LEFT VENTRICULAR DYSFUNCTION [None]
  - FLUID OVERLOAD [None]
  - WEIGHT INCREASED [None]
  - BLOOD UREA INCREASED [None]
  - BLOOD CREATININE INCREASED [None]
  - JOINT SWELLING [None]
  - OEDEMA PERIPHERAL [None]
  - PANCREATIC PSEUDOCYST [None]
  - BLOOD GLUCOSE INCREASED [None]
  - ACUTE MYOCARDIAL INFARCTION [None]
  - CARDIAC FAILURE [None]
  - HYPERTENSION [None]
  - GOUT [None]
  - PANCREATITIS ACUTE [None]
